FAERS Safety Report 7170414-8 (Version None)
Quarter: 2010Q4

REPORT INFORMATION
  Report Type: 
  Country: None (occurrence: None)
  Receive Date: 20101217
  Receipt Date: 20101209
  Transmission Date: 20110411
  Serious: Yes (Disabling)
  Sender: FDA-Public Use
  Company Number: JP-ASTRAZENECA-2010SE44595

PATIENT
  Age: 37 Year
  Sex: Female
  Weight: 62 kg

DRUGS (2)
  1. ROPIVACAINE HYDROCHLORIDE [Suspect]
     Indication: POSTOPERATIVE ANALGESIA
     Dosage: FENTANYL 10 ML + 0.2 % ANAPEINE 200 ML: 4 ML/HR AND BOLUS 3 ML EVERY 30 MIN
     Route: 008
     Dates: start: 20100914, end: 20100916
  2. FENTANYL [Concomitant]
     Indication: POSTOPERATIVE ANALGESIA
     Dosage: FENTANYL 10 ML + 0.2 % ANAPEINE 200 ML: 4 ML/HR AND BOLUS 3 ML EVERY 30 MIN
     Route: 008
     Dates: start: 20100914, end: 20100916

REACTIONS (1)
  - NERVOUS SYSTEM DISORDER [None]
